FAERS Safety Report 8936118 (Version 1)
Quarter: 2012Q4

REPORT INFORMATION
  Report Type: Spontaneous
  Country: US (occurrence: None)
  Receive Date: 20121128
  Receipt Date: 20121128
  Transmission Date: 20130627
  Serious: Yes (Life-Threatening, Hospitalization, Other)
  Sender: FDA-Public Use
  Company Number: None

PATIENT
  Age: 57 Year
  Sex: Male
  Weight: 82.3 kg

DRUGS (1)
  1. FERAHEME [Suspect]
     Indication: IRON DEFICIENCY ANEMIA
     Route: 042
     Dates: start: 20121106, end: 20121115

REACTIONS (6)
  - Dyspnoea [None]
  - Blood pressure decreased [None]
  - Chills [None]
  - Feeling abnormal [None]
  - Infusion related reaction [None]
  - Flushing [None]
